FAERS Safety Report 7879391-5 (Version None)
Quarter: 2011Q4

REPORT INFORMATION
  Report Type: 
  Country: None (occurrence: None)
  Receive Date: 20111101
  Receipt Date: 20111024
  Transmission Date: 20120403
  Serious: Yes (Other)
  Sender: FDA-Public Use
  Company Number: US-BAYER-2011-103258

PATIENT
  Sex: Female

DRUGS (1)
  1. MIRENA [Suspect]
     Dosage: 20 MCG/24HR, CONT
     Dates: start: 20111001

REACTIONS (4)
  - PROCEDURAL PAIN [None]
  - FEELING HOT [None]
  - GENITAL HAEMORRHAGE [None]
  - VAGINAL ODOUR [None]
